FAERS Safety Report 22604255 (Version 1)
Quarter: 2023Q2

REPORT INFORMATION
  Report Type: Spontaneous
  Country: US (occurrence: US)
  Receive Date: 20230615
  Receipt Date: 20230615
  Transmission Date: 20230721
  Serious: Yes (Hospitalization)
  Sender: FDA-Public Use
  Company Number: US-SANOFI-01647971

PATIENT
  Age: 69 Year
  Sex: Female

DRUGS (1)
  1. LANTUS SOLOSTAR [Suspect]
     Active Substance: INSULIN GLARGINE
     Indication: Diabetes mellitus
     Dosage: 36 UNITS IN THE MORNING AND 32 UNITS AT NIGHT

REACTIONS (4)
  - Ankle fracture [Unknown]
  - Weight bearing difficulty [Not Recovered/Not Resolved]
  - Gait disturbance [Not Recovered/Not Resolved]
  - Inappropriate schedule of product administration [Unknown]

NARRATIVE: CASE EVENT DATE: 20221222
